FAERS Safety Report 9720843 (Version 3)
Quarter: 2013Q4

REPORT INFORMATION
  Report Type: Report from Study
  Country: AU (occurrence: AT)
  Receive Date: 20131129
  Receipt Date: 20131229
  Transmission Date: 20140711
  Serious: Yes (Hospitalization, Other)
  Sender: FDA-Public Use
  Company Number: AU-CELGENEUS-009-21880-13101287

PATIENT
  Age: 49 Year
  Sex: Female
  Weight: 60 kg

DRUGS (17)
  1. REVLIMID [Suspect]
     Indication: LYMPHOMA
     Dosage: 20 MILLIGRAM
     Route: 048
     Dates: start: 20130926
  2. REVLIMID [Suspect]
     Dosage: 20 MILLIGRAM
     Route: 048
     Dates: end: 20131004
  3. RITUXIMAB [Suspect]
     Indication: LYMPHOMA
     Dosage: 618 MILLIGRAM
     Route: 041
     Dates: start: 20130926
  4. GABAPENTIN [Concomitant]
     Indication: PRODUCT USED FOR UNKNOWN INDICATION
     Route: 065
     Dates: start: 201302
  5. CYMBALTA [Concomitant]
     Indication: PRODUCT USED FOR UNKNOWN INDICATION
     Route: 065
     Dates: start: 201302
  6. ZYRTEC [Concomitant]
     Indication: EYE SWELLING
     Dosage: 10 MILLIGRAM
     Route: 065
     Dates: start: 20131004
  7. VOLTAREN [Concomitant]
     Indication: PRODUCT USED FOR UNKNOWN INDICATION
     Dosage: 100 MILLIGRAM
     Route: 065
     Dates: start: 20131004
  8. THROMBO ASS [Concomitant]
     Indication: PRODUCT USED FOR UNKNOWN INDICATION
     Dosage: 100 MILLIGRAM
     Route: 048
     Dates: start: 20130926
  9. UROSIN [Concomitant]
     Indication: PRODUCT USED FOR UNKNOWN INDICATION
     Route: 065
     Dates: start: 20130926
  10. NOVALGIN [Concomitant]
     Indication: PRODUCT USED FOR UNKNOWN INDICATION
     Route: 065
     Dates: start: 20130926
  11. ALPROSTADIL [Concomitant]
     Indication: PRODUCT USED FOR UNKNOWN INDICATION
     Route: 041
  12. HEPARIN [Concomitant]
     Indication: PRODUCT USED FOR UNKNOWN INDICATION
     Route: 065
  13. PIPERACILLIN/TAZOBACTAM [Concomitant]
     Indication: ANTI-INFECTIVE THERAPY
     Route: 065
  14. CORTISONE [Concomitant]
     Indication: VASCULITIS
     Route: 041
     Dates: start: 20131008
  15. APREDNISLON [Concomitant]
     Indication: VASCULITIS
     Route: 048
  16. MEROPENEM [Concomitant]
     Indication: PNEUMONIA
     Route: 041
  17. CEFEPIM [Concomitant]
     Indication: PNEUMONIA
     Route: 041

REACTIONS (2)
  - Vasculitis [Recovered/Resolved]
  - Anaemia [Recovered/Resolved with Sequelae]
